FAERS Safety Report 7656526-0 (Version None)
Quarter: 2011Q3

REPORT INFORMATION
  Report Type: 
  Country: None (occurrence: None)
  Receive Date: 20110804
  Receipt Date: 20101019
  Transmission Date: 20111222
  Serious: No
  Sender: FDA-Public Use
  Company Number: US-BAUSCH-2010BL005919

PATIENT
  Age: 74 Year
  Sex: Female

DRUGS (4)
  1. OPCON-A [Suspect]
     Indication: EYE PRURITUS
     Route: 047
     Dates: start: 20101001
  2. SYSTANE [Suspect]
     Indication: DRY EYE
     Route: 047
     Dates: start: 20101001
  3. OPCON-A [Suspect]
     Indication: EYE IRRITATION
     Route: 047
     Dates: start: 20101001
  4. TRAVATAN [Suspect]
     Indication: GLAUCOMA
     Route: 047
     Dates: start: 20100930, end: 20101014

REACTIONS (2)
  - EYELID IRRITATION [None]
  - EYELIDS PRURITUS [None]
